FAERS Safety Report 6971127-5 (Version None)
Quarter: 2010Q3

REPORT INFORMATION
  Report Type: 
  Country: None (occurrence: None)
  Receive Date: 20100908
  Receipt Date: 20100901
  Transmission Date: 20110219
  Serious: Yes (Hospitalization)
  Sender: FDA-Public Use
  Company Number: CA-US-EMD SERONO, INC.-230166J08CAN

PATIENT
  Sex: Female

DRUGS (15)
  1. REBIF [Suspect]
     Indication: MULTIPLE SCLEROSIS
     Dates: start: 20010608, end: 20100101
  2. REBIF [Suspect]
     Dates: start: 20100101
  3. TEGREGOL [TEGRETOL] [Concomitant]
     Dates: end: 20100101
  4. AVAPRO [Concomitant]
  5. NORVASC [Concomitant]
  6. ASPIRIN [Concomitant]
  7. ADALAT [Concomitant]
  8. APONADOL [Concomitant]
  9. ASAPHEN E.C. [Concomitant]
  10. APO-AMITRIPTYLINE [Concomitant]
  11. PRAVASTATIN [Concomitant]
  12. NEXIUM [Concomitant]
  13. MIRAPEX [Concomitant]
  14. TRAZODONE HCL [Concomitant]
  15. ACETAMINOPHEN [Concomitant]

REACTIONS (9)
  - BLOOD SODIUM DECREASED [None]
  - CONFUSIONAL STATE [None]
  - FATIGUE [None]
  - HEADACHE [None]
  - HYPERTENSION [None]
  - INFLUENZA LIKE ILLNESS [None]
  - INJECTION SITE ERYTHEMA [None]
  - INJECTION SITE MASS [None]
  - NAUSEA [None]
